FAERS Safety Report 5084408-X (Version None)
Quarter: 2006Q3

REPORT INFORMATION
  Report Type: 
  Country: None (occurrence: None)
  Receive Date: 20060821
  Receipt Date: 20060112
  Transmission Date: 20061208
  Serious: Yes (Life-Threatening, Hospitalization, Disabling, Other)
  Sender: FDA-Public Use
  Company Number: US-GLAXOSMITHKLINE-A0589005A

PATIENT
  Age: 77 Year
  Sex: Female

DRUGS (9)
  1. COREG [Suspect]
     Indication: VENTRICULAR DYSFUNCTION
     Dosage: 25MG TWICE PER DAY
     Route: 048
  2. AMIODARONE HCL [Concomitant]
     Dosage: 200MG PER DAY
  3. LISINOPRIL [Concomitant]
     Dosage: 30MG PER DAY
  4. ASPIRIN [Concomitant]
     Dosage: 81MG PER DAY
  5. NIFEDIPINE [Concomitant]
     Dosage: 60MG TWICE PER DAY
  6. DEMADEX [Concomitant]
     Dosage: 20MG IN THE MORNING
  7. ULTRACET [Concomitant]
  8. VITAMIN B COMPLEX CAP [Concomitant]
  9. GLYBURIDE [Concomitant]
     Dosage: 2.5MG PER DAY

REACTIONS (4)
  - ATRIAL FIBRILLATION [None]
  - DYSPNOEA [None]
  - SHOCK [None]
  - TREATMENT NONCOMPLIANCE [None]
